FAERS Safety Report 9104288 (Version 1)
Quarter: 2013Q1

REPORT INFORMATION
  Report Type: Report from Study
  Country: CA (occurrence: CA)
  Receive Date: 20130219
  Receipt Date: 20130219
  Transmission Date: 20140127
  Serious: Yes (Other)
  Sender: FDA-Public Use
  Company Number: PHHY2013CA015788

PATIENT
  Sex: 0

DRUGS (1)
  1. ACLASTA/ZOLEDRONATE [Suspect]
     Dosage: UNK
     Route: 042

REACTIONS (1)
  - Bone density decreased [Unknown]
